FAERS Safety Report 5395944-0 (Version None)
Quarter: 2007Q3

REPORT INFORMATION
  Report Type: 
  Country: None (occurrence: None)
  Receive Date: 20070718
  Receipt Date: 20061004
  Transmission Date: 20080115
  Serious: Yes (Hospitalization)
  Sender: FDA-Public Use
  Company Number: 2006125381

PATIENT
  Age: 46 Year
  Sex: Male
  Weight: 149.687 kg

DRUGS (1)
  1. CELEBREX [Suspect]
     Indication: ARTHRALGIA
     Dosage: 800 MG (400 MG, 2 IN 1 D)
     Dates: start: 20000401, end: 20050101

REACTIONS (2)
  - BLOOD PRESSURE INCREASED [None]
  - MYOCARDIAL INFARCTION [None]
